FAERS Safety Report 16266110 (Version 4)
Quarter: 2019Q4

REPORT INFORMATION
  Report Type: Spontaneous
  Country: US (occurrence: US)
  Receive Date: 20190502
  Receipt Date: 20191217
  Transmission Date: 20200122
  Serious: Yes (Other)
  Sender: FDA-Public Use
  Company Number: US-ASTRAZENECA-2019SE09927

PATIENT
  Age: 51 Year
  Sex: Male
  Weight: 79.8 kg

DRUGS (37)
  1. AMOXICILLIN. [Concomitant]
     Active Substance: AMOXICILLIN
     Route: 065
     Dates: start: 20160607
  2. ALBUTEROL. [Concomitant]
     Active Substance: ALBUTEROL
  3. FLUNISOLIDE. [Concomitant]
     Active Substance: FLUNISOLIDE
  4. MIRTAZAPINE. [Concomitant]
     Active Substance: MIRTAZAPINE
  5. PREDNISONE. [Concomitant]
     Active Substance: PREDNISONE
  6. NEXIUM [Suspect]
     Active Substance: ESOMEPRAZOLE MAGNESIUM
     Dosage: FOR VARIOUS DATES AND YEARS PRIOR TO AND INCLUDING THE DATES OF PLAINTIFF^S INJURY OR INJURIES
     Route: 048
  7. NEXIUM 24HR [Suspect]
     Active Substance: ESOMEPRAZOLE MAGNESIUM
     Dosage: FOR VARIOUS DATES AND YEARS PRIOR TO AND INCLUDING THE DATES OF PLAINTIFF^S INJURY OR INJURIES
     Route: 048
  8. AMOXICILLIN. [Concomitant]
     Active Substance: AMOXICILLIN
     Route: 065
     Dates: start: 20150206
  9. OXYCODONE [Concomitant]
     Active Substance: OXYCODONE
  10. PROVENTIL [Concomitant]
     Active Substance: ALBUTEROL
  11. LEVOCETIRIZINE [Concomitant]
     Active Substance: LEVOCETIRIZINE
  12. VENTOLIN [Concomitant]
     Active Substance: ALBUTEROL SULFATE
  13. PANTOPRAZOLE [Suspect]
     Active Substance: PANTOPRAZOLE
     Indication: GASTROOESOPHAGEAL REFLUX DISEASE
     Dosage: GENERIC
     Route: 065
     Dates: start: 2015, end: 2018
  14. BETHANECHOL [Concomitant]
     Active Substance: BETHANECHOL
  15. CEPHALEXIN. [Concomitant]
     Active Substance: CEPHALEXIN
  16. TUMS [Concomitant]
     Active Substance: CALCIUM CARBONATE
     Route: 065
  17. ROLAIDS [Concomitant]
     Active Substance: CALCIUM CARBONATE\MAGNESIUM HYDROXIDE
     Route: 065
  18. OMEPRAZOLE. [Suspect]
     Active Substance: OMEPRAZOLE
     Indication: GASTROOESOPHAGEAL REFLUX DISEASE
     Dosage: GENERIC
     Route: 065
  19. PRILOSEC OTC [Suspect]
     Active Substance: OMEPRAZOLE MAGNESIUM
     Dosage: FOR VARIOUS DATES AND YEARS PRIOR TO AND INCLUDING THE DATES OF PLAINTIFF^S INJURY OR INJURIES
     Route: 048
  20. AZITHROMYCIN ANHYDROUS. [Concomitant]
     Active Substance: AZITHROMYCIN ANHYDROUS
     Dates: start: 20150117
  21. NEXIUM [Suspect]
     Active Substance: ESOMEPRAZOLE MAGNESIUM
     Route: 048
     Dates: start: 2008, end: 2016
  22. OMEPRAZOLE. [Suspect]
     Active Substance: OMEPRAZOLE
     Indication: GASTROOESOPHAGEAL REFLUX DISEASE
     Dosage: GENERIC
     Route: 065
     Dates: start: 2017
  23. PANTOPRAZOLE [Suspect]
     Active Substance: PANTOPRAZOLE
     Indication: GASTROOESOPHAGEAL REFLUX DISEASE
     Dosage: GENERIC
     Route: 065
  24. IBUPROFEN. [Concomitant]
     Active Substance: IBUPROFEN
  25. NEXIUM [Suspect]
     Active Substance: ESOMEPRAZOLE MAGNESIUM
     Route: 048
     Dates: start: 20110819
  26. CLINDAMYCIN HCL [Concomitant]
     Active Substance: CLINDAMYCIN HYDROCHLORIDE
     Dates: start: 20160125
  27. METOPROLOL. [Concomitant]
     Active Substance: METOPROLOL
  28. SUDAFED [Concomitant]
     Active Substance: PSEUDOEPHEDRINE HYDROCHLORIDE
     Route: 065
  29. PREVACID 24 HR [Suspect]
     Active Substance: LANSOPRAZOLE
     Dosage: FOR VARIOUS DATES AND YEARS PRIOR TO AND INCLUDING THE DATES OF PLAINTIFF^S INJURY OR INJURIES
     Route: 065
  30. FLUTICASONE. [Concomitant]
     Active Substance: FLUTICASONE
     Indication: ASTHMA
  31. CEFDINIR. [Concomitant]
     Active Substance: CEFDINIR
     Route: 065
  32. BETHANECHOL [Concomitant]
     Active Substance: BETHANECHOL
     Route: 065
  33. CHLORHEXIDINE [Concomitant]
     Active Substance: CHLORHEXIDINE
  34. AMOXICILLIN. [Concomitant]
     Active Substance: AMOXICILLIN
     Route: 065
     Dates: start: 20160612
  35. PREDNISONE. [Concomitant]
     Active Substance: PREDNISONE
  36. PENICILLIN [Concomitant]
     Active Substance: PENICILLIN
  37. HYDROCODONE [Concomitant]
     Active Substance: HYDROCODONE
     Indication: PAIN
     Route: 065

REACTIONS (5)
  - Rebound acid hypersecretion [Unknown]
  - Chronic kidney disease [Unknown]
  - Renal failure [Unknown]
  - Rhabdomyolysis [Not Recovered/Not Resolved]
  - Renal injury [Unknown]

NARRATIVE: CASE EVENT DATE: 2014
